FAERS Safety Report 6019480 (Version 31)
Quarter: 2014Q1

REPORT INFORMATION
  Report Type: Spontaneous
  Country: US (occurrence: US)
  Receive Date: 20060406
  Receipt Date: 20140206
  Transmission Date: 20141002
  Serious: Yes (Hospitalization, Other)
  Sender: FDA-Public Use
  Company Number: PHEH2006US04085

PATIENT
  Age: 74 Year
  Sex: Female
  Weight: 69.84 kg

DRUGS (28)
  1. AREDIA [Suspect]
     Indication: METASTASES TO BONE
     Route: 042
     Dates: start: 20010723
  2. ZOMETA [Suspect]
     Indication: METASTASES TO BONE
     Dosage: 4 MG, QMO
     Route: 042
     Dates: end: 200502
  3. THALIDOMIDE [Suspect]
     Indication: PLASMA CELL MYELOMA
  4. TAMOXIFEN [Concomitant]
     Indication: BREAST CANCER
     Dates: start: 199902, end: 20031027
  5. FLECAINIDE [Concomitant]
     Indication: ATRIAL FIBRILLATION
  6. GLIPIZIDE [Concomitant]
  7. PROCHLORPERAZINE [Concomitant]
  8. ATIVAN [Concomitant]
  9. NEUPOGEN [Concomitant]
  10. DEXAMETHASONE [Concomitant]
  11. COMPAZINE [Concomitant]
  12. TYLENOL [Concomitant]
  13. AMITRIPTYLINE [Concomitant]
     Dosage: 10 MG, BID
     Route: 048
     Dates: start: 20050216
  14. COUMADIN ^BOOTS^ [Concomitant]
     Dosage: 1 MG, QD
     Route: 048
     Dates: start: 20050221
  15. MOBIC [Concomitant]
     Dosage: 7.5 MG, PRN
     Route: 048
     Dates: start: 20050225
  16. OXYCONTIN [Concomitant]
     Dosage: 20 MG, BID
     Route: 048
     Dates: start: 20050308
  17. PROPOXYPHENE HCL AND ACETAMINOPHEN [Concomitant]
     Dosage: 100 MG, PRN
     Route: 048
     Dates: start: 20050515
  18. KEPPRA [Concomitant]
     Dosage: 500 MG, BID
     Route: 048
     Dates: start: 20050923
  19. POTASSIUM CHLORIDE [Concomitant]
     Dosage: 20 MEQ, QOD
     Route: 048
     Dates: start: 20060805
  20. FEXOFENADINE HYDROCHLORIDE [Concomitant]
     Dosage: 100 MG, QD
     Route: 048
     Dates: start: 20060815
  21. LASIX [Concomitant]
     Dosage: 20 MG, QOD
     Route: 048
     Dates: start: 20060915
  22. CYMBALTA [Concomitant]
     Dosage: 60 MG, QD
     Route: 048
     Dates: start: 20060916
  23. CHLORHEXIDINE DENTAL ^ACO^ [Concomitant]
     Route: 049
     Dates: start: 20070921
  24. CIPROFLOXACIN [Concomitant]
     Dosage: 500 MG, BID
     Route: 048
     Dates: start: 20071001
  25. METRONIDAZOL ^ALPHARMA^ [Concomitant]
     Dosage: 250 MG, TID
     Route: 048
     Dates: start: 20071001
  26. SUPARTZ [Concomitant]
     Route: 065
  27. ACYCLOVIR [Concomitant]
  28. PROCRIT//EPOETIN ALFA [Concomitant]

REACTIONS (82)
  - Lymphoma [Unknown]
  - Diabetes mellitus [Unknown]
  - Pyrexia [Unknown]
  - Osteonecrosis of jaw [Recovering/Resolving]
  - Pain [Unknown]
  - Bone disorder [Unknown]
  - Gingival pain [Unknown]
  - Gingival erythema [Unknown]
  - Bone swelling [Unknown]
  - Infection [Unknown]
  - Granuloma [Unknown]
  - Primary sequestrum [Unknown]
  - Jaw fracture [Unknown]
  - Intraductal proliferative breast lesion [Unknown]
  - Dental fistula [Unknown]
  - Tooth fracture [Unknown]
  - Wound [Unknown]
  - Hypoaesthesia [Unknown]
  - Fistula discharge [Unknown]
  - Haemorrhage [Unknown]
  - Excessive granulation tissue [Unknown]
  - Pain in jaw [Recovering/Resolving]
  - Osteoarthritis [Unknown]
  - Neuropathy peripheral [Recovering/Resolving]
  - Discomfort [Recovering/Resolving]
  - Blindness [Unknown]
  - Deep vein thrombosis [Unknown]
  - Hyperlipidaemia [Unknown]
  - Peripheral vascular disorder [Unknown]
  - Intervertebral disc degeneration [Unknown]
  - Intervertebral disc space narrowing [Unknown]
  - Synovial cyst [Unknown]
  - Arthralgia [Unknown]
  - Osteomyelitis [Not Recovered/Not Resolved]
  - Varicose vein [Unknown]
  - Paraesthesia [Unknown]
  - Arthritis [Unknown]
  - Facial pain [Unknown]
  - Spinal osteoarthritis [Unknown]
  - Joint swelling [Unknown]
  - Osteonecrosis [Unknown]
  - Eye haemorrhage [Unknown]
  - Osteosclerosis [Unknown]
  - Dyspepsia [Unknown]
  - Diarrhoea [Unknown]
  - Gravitational oedema [Unknown]
  - Nausea [Unknown]
  - Cervical spine flattening [Unknown]
  - Scoliosis [Unknown]
  - Local swelling [Unknown]
  - Temporomandibular joint syndrome [Unknown]
  - Vertebral foraminal stenosis [Unknown]
  - Spinal cord compression [Unknown]
  - Exposed bone in jaw [Unknown]
  - Thrombosis [Unknown]
  - Exostosis [Unknown]
  - Facet joint syndrome [Unknown]
  - Sinusitis [Unknown]
  - Deafness [Unknown]
  - Open angle glaucoma [Unknown]
  - Age-related macular degeneration [Unknown]
  - Phlebitis [Unknown]
  - Joint stiffness [Unknown]
  - Muscle spasms [Unknown]
  - Macular degeneration [Not Recovered/Not Resolved]
  - Micturition urgency [Unknown]
  - Vision blurred [Unknown]
  - Chorioretinal scar [Unknown]
  - Vitreous detachment [Unknown]
  - Vitreous degeneration [Unknown]
  - Iris atrophy [Unknown]
  - Pruritus [Unknown]
  - Cerumen impaction [Unknown]
  - Vertigo [Unknown]
  - Hyperhidrosis [Unknown]
  - Rash [Unknown]
  - Oral pain [Unknown]
  - Blepharitis [Unknown]
  - Eye pain [Unknown]
  - Diplopia [Unknown]
  - Muscular weakness [Unknown]
  - Contusion [Unknown]
